FAERS Safety Report 8151433-1 (Version None)
Quarter: 2012Q1

REPORT INFORMATION
  Report Type: 
  Country: None (occurrence: None)
  Receive Date: 20120220
  Receipt Date: 20101114
  Transmission Date: 20120608
  Serious: Yes (Death, Other)
  Sender: FDA-Public Use
  Company Number: ES-ROCHE-1038756

PATIENT

DRUGS (2)
  1. AVASTIN [Suspect]
     Indication: MALIGNANT GLIOMA
     Route: 065
  2. IRINOTECAN HYDROCHLORIDE [Suspect]
     Indication: MALIGNANT GLIOMA
     Route: 065

REACTIONS (6)
  - EMBOLISM [None]
  - ASTHENIA [None]
  - NEUROTOXICITY [None]
  - DIARRHOEA [None]
  - HAEMORRHAGE [None]
  - NEUTROPENIA [None]
